FAERS Safety Report 18664923 (Version 1)
Quarter: 2020Q4

REPORT INFORMATION
  Report Type: Spontaneous
  Country: JP (occurrence: JP)
  Receive Date: 20201225
  Receipt Date: 20201225
  Transmission Date: 20210114
  Serious: Yes (Hospitalization)
  Sender: FDA-Public Use
  Company Number: JP-009507513-2012JPN010826

PATIENT
  Age: 41 Year
  Sex: Female

DRUGS (3)
  1. TRANILAST [Suspect]
     Active Substance: TRANILAST
     Dosage: UNK
     Route: 048
  2. MONTELUKAST SODIUM. [Suspect]
     Active Substance: MONTELUKAST SODIUM
     Dosage: 10 MG
     Route: 048
     Dates: start: 201911, end: 201912
  3. CARBOCISTEINE TEVA [Suspect]
     Active Substance: CARBOCYSTEINE
     Dosage: UNK
     Route: 048

REACTIONS (1)
  - Drug-induced liver injury [Unknown]
